FAERS Safety Report 21772503 (Version 1)
Quarter: 2022Q4

REPORT INFORMATION
  Report Type: Spontaneous
  Country: FR (occurrence: FR)
  Receive Date: 20221223
  Receipt Date: 20221223
  Transmission Date: 20230112
  Serious: Yes (Other)
  Sender: FDA-Public Use
  Company Number: None

PATIENT
  Age: 72 Year
  Sex: Male

DRUGS (5)
  1. DOXYCYCLINE HYDROCHLORIDE [Suspect]
     Active Substance: DOXYCYCLINE HYDROCHLORIDE
     Indication: Sepsis
     Dosage: UNIT DOSE : 100 MG, FREQUENCY TIME : 12 HOURS, THERAPY END DATE : NASK
     Route: 065
     Dates: start: 20220614
  2. MEROPENEM ANHYDROUS [Suspect]
     Active Substance: MEROPENEM ANHYDROUS
     Indication: Sepsis
     Dosage: UNIT DOSE : 2 GRAM, FREQUENCY TIME : 8 HOURS, THERAPY END DATE : NASK
     Route: 065
     Dates: start: 20220505
  3. LEVOFLOXACIN [Concomitant]
     Active Substance: LEVOFLOXACIN
     Indication: Sepsis
     Dosage: DURATION : 96 DAYS
     Route: 065
     Dates: start: 20220225, end: 20220601
  4. COLIMYCINE [Concomitant]
     Indication: Sepsis
     Dosage: UNIT DOSE : 3 MU, FREQUENCY TIME : 8 HOURS, DURATION : 42 DAYS
     Route: 065
     Dates: start: 20220505, end: 20220616
  5. DAPTOMYCIN [Concomitant]
     Active Substance: DAPTOMYCIN
     Indication: Sepsis
     Dosage: DURATION : 92 DAYS
     Route: 065
     Dates: start: 20220223, end: 20220526

REACTIONS (2)
  - Cholestasis [Not Recovered/Not Resolved]
  - Condition aggravated [Not Recovered/Not Resolved]

NARRATIVE: CASE EVENT DATE: 20220501
